FAERS Safety Report 7220125-5 (Version None)
Quarter: 2011Q1

REPORT INFORMATION
  Report Type: 
  Country: None (occurrence: None)
  Receive Date: 20110111
  Receipt Date: 20110103
  Transmission Date: 20110831
  Serious: Yes (Other)
  Sender: FDA-Public Use
  Company Number: CHPA2011US00460

PATIENT
  Age: 75 Year
  Sex: Female
  Weight: 57.143 kg

DRUGS (1)
  1. PRIVATE LABEL [Suspect]
     Indication: SMOKING CESSATION THERAPY
     Dosage: 21 MG, QD
     Route: 062
     Dates: start: 20100101, end: 20100101

REACTIONS (4)
  - SURGERY [None]
  - ABDOMINAL DISCOMFORT [None]
  - ANORECTAL OPERATION [None]
  - MALAISE [None]
